FAERS Safety Report 16627938 (Version 1)
Quarter: 2019Q3

REPORT INFORMATION
  Report Type: Spontaneous
  Country: US (occurrence: US)
  Receive Date: 20190612
  Receipt Date: 20190612
  Transmission Date: 20191004
  Serious: No
  Sender: FDA-Public Use
  Company Number: None

PATIENT
  Age: 57 Year
  Sex: Female

DRUGS (1)
  1. AIMOVIG [Suspect]
     Active Substance: ERENUMAB-AOOE
     Indication: MIGRAINE WITHOUT AURA
     Route: 058
     Dates: start: 20181029

REACTIONS (4)
  - Hypoaesthesia [None]
  - Limb mass [None]
  - Rash [None]
  - Peripheral swelling [None]

NARRATIVE: CASE EVENT DATE: 201905
